FAERS Safety Report 15477465 (Version 2)
Quarter: 2019Q1

REPORT INFORMATION
  Report Type: Spontaneous
  Country: US (occurrence: US)
  Receive Date: 20181009
  Receipt Date: 20190208
  Transmission Date: 20190417
  Serious: No
  Sender: FDA-Public Use
  Company Number: US-TEVA-2018-US-960905

PATIENT
  Sex: Female

DRUGS (3)
  1. QVAR REDIHALER [Suspect]
     Active Substance: BECLOMETHASONE DIPROPIONATE
     Indication: ASTHMA
     Dosage: 1 PUFF TWICE A DAY
     Dates: start: 20180930, end: 20181001
  2. XOPENEX [Concomitant]
     Active Substance: LEVALBUTEROL HYDROCHLORIDE
  3. PROVENTIL [Concomitant]
     Active Substance: ALBUTEROL

REACTIONS (4)
  - Nasal discomfort [Recovered/Resolved]
  - Epistaxis [Recovered/Resolved]
  - Product substitution issue [Unknown]
  - Adverse drug reaction [Unknown]

NARRATIVE: CASE EVENT DATE: 20180930
